FAERS Safety Report 6784802-2 (Version None)
Quarter: 2010Q2

REPORT INFORMATION
  Report Type: 
  Country: None (occurrence: None)
  Receive Date: 20100622
  Receipt Date: 20100617
  Transmission Date: 20101027
  Serious: Yes (Death, Hospitalization)
  Sender: FDA-Public Use
  Company Number: PHHO2010US01703

PATIENT
  Age: 68 Year
  Sex: Male
  Weight: 63.946 kg

DRUGS (2)
  1. AFINITOR [Suspect]
     Indication: NON-SMALL CELL LUNG CANCER STAGE IV
     Dosage: 7.5 MG DAILY
     Route: 048
  2. CETUXIMAB COMP-CET+ [Suspect]
     Indication: NON-SMALL CELL LUNG CANCER STAGE IV
     Dosage: 445 MG, QW

REACTIONS (3)
  - DYSPNOEA [None]
  - NON-SMALL CELL LUNG CANCER [None]
  - RESPIRATORY DISTRESS [None]
